FAERS Safety Report 15879570 (Version 1)
Quarter: 2019Q1

REPORT INFORMATION
  Report Type: Spontaneous
  Country: US (occurrence: US)
  Receive Date: 20190127
  Receipt Date: 20190127
  Transmission Date: 20190417
  Serious: Yes (Other)
  Sender: FDA-Public Use
  Company Number: None

PATIENT
  Age: 63 Year
  Sex: Female
  Weight: 52.65 kg

DRUGS (3)
  1. COLACE [Concomitant]
     Active Substance: DOCUSATE SODIUM
  2. SYNTHROID [Concomitant]
     Active Substance: LEVOTHYROXINE SODIUM
  3. LIDOCAINE PATCHES 5% [Suspect]
     Active Substance: LIDOCAINE
     Indication: SPINAL PAIN
     Dosage: ?          QUANTITY:1 PATCH(ES);?
     Route: 062
     Dates: start: 20190126, end: 20190127

REACTIONS (6)
  - Insurance issue [None]
  - Product adhesion issue [None]
  - Product substitution issue [None]
  - Inadequate analgesia [None]
  - Therapeutic product ineffective [None]
  - Product complaint [None]

NARRATIVE: CASE EVENT DATE: 20190126
